FAERS Safety Report 8496229-6 (Version None)
Quarter: 2012Q3

REPORT INFORMATION
  Report Type: 
  Country: None (occurrence: None)
  Receive Date: 20120709
  Receipt Date: 20120705
  Transmission Date: 20120928
  Serious: No
  Sender: FDA-Public Use
  Company Number: US-JNJFOC-20120613471

PATIENT
  Sex: Female

DRUGS (17)
  1. ZINC SULFATE [Concomitant]
     Route: 065
  2. UNSPECIFIED THYROID REPLACEMENT [Concomitant]
     Indication: THYROID HORMONE REPLACEMENT THERAPY
     Route: 065
  3. ROGAINE (FOR WOMEN) [Suspect]
     Route: 061
  4. RESVERATROL [Concomitant]
     Route: 065
  5. ASCORBIC ACID [Concomitant]
     Indication: ALOPECIA
     Route: 065
  6. UNKNOWN MEDICATION [Suspect]
     Indication: ALOPECIA
     Route: 065
  7. PROBIOTICS [Concomitant]
     Route: 065
  8. CALCIUM [Concomitant]
     Route: 065
  9. LOVAZA [Concomitant]
     Route: 065
  10. ROGAINE (FOR WOMEN) [Suspect]
     Indication: ALOPECIA
     Dosage: AM AND PM
     Route: 061
     Dates: start: 20110101
  11. METHYLSULFONYLMETHANE [Concomitant]
     Indication: ALOPECIA
     Route: 065
  12. VITAMIN D [Concomitant]
     Route: 065
  13. IRON [Concomitant]
     Route: 065
  14. UBIQUINON [Concomitant]
     Route: 065
  15. ONE-A-DAY MULTIVITAMINS [Concomitant]
     Route: 065
  16. ANTI-ASTHMA MEDICATION [Concomitant]
     Indication: ASTHMA
     Route: 065
  17. UNSPECIFIED ARTHRITIC MEDICATION [Concomitant]
     Indication: ARTHRITIS
     Route: 065

REACTIONS (3)
  - WRONG TECHNIQUE IN DRUG USAGE PROCESS [None]
  - ALOPECIA [None]
  - HAIR TEXTURE ABNORMAL [None]
